FAERS Safety Report 5860103-1 (Version None)
Quarter: 2008Q3

REPORT INFORMATION
  Report Type: 
  Country: None (occurrence: None)
  Receive Date: 20080827
  Receipt Date: 20080818
  Transmission Date: 20090109
  Serious: Yes (Hospitalization, Other)
  Sender: FDA-Public Use
  Company Number: HQWYE127319JUL07

PATIENT
  Sex: Male
  Weight: 15.6 kg

DRUGS (4)
  1. BENEFIX [Suspect]
     Indication: FACTOR IX DEFICIENCY
     Dosage: 50 IU/KG
     Route: 042
     Dates: end: 20070704
  2. BENEFIX [Suspect]
     Route: 042
  3. BENEFIX [Suspect]
     Route: 042
     Dates: end: 20080501
  4. BENEFIX [Suspect]
     Route: 042
     Dates: start: 20080514, end: 20080514

REACTIONS (5)
  - ABDOMINAL PAIN UPPER [None]
  - AGITATION [None]
  - FACTOR IX INHIBITION [None]
  - FLUSHING [None]
  - HYPERSENSITIVITY [None]
